FAERS Safety Report 11096491 (Version 2)
Quarter: 2015Q2

REPORT INFORMATION
  Report Type: Spontaneous
  Country: CO (occurrence: CO)
  Receive Date: 20150507
  Receipt Date: 20150603
  Transmission Date: 20150821
  Serious: Yes (Hospitalization)
  Sender: FDA-Public Use
  Company Number: CO-JNJFOC-20150423053

PATIENT
  Age: 77 Year
  Sex: Male
  Weight: 55 kg

DRUGS (1)
  1. INVEGA SUSTENNA [Suspect]
     Active Substance: PALIPERIDONE PALMITATE
     Indication: SCHIZOPHRENIA
     Dosage: THE DOSING SCHEME PRESCRIBED WAS: DAY 1: 150 MG, DAY 8: 100 MG, AND MAINTENANCE DOSES OF 100 MG.
     Route: 030
     Dates: start: 20150317, end: 20150326

REACTIONS (4)
  - Insomnia [Not Recovered/Not Resolved]
  - Drug ineffective [Unknown]
  - Aggression [Not Recovered/Not Resolved]
  - Logorrhoea [Not Recovered/Not Resolved]

NARRATIVE: CASE EVENT DATE: 20150427
